FAERS Safety Report 8209189-X (Version None)
Quarter: 2012Q1

REPORT INFORMATION
  Report Type: 
  Country: None (occurrence: None)
  Receive Date: 20120314
  Receipt Date: 20120307
  Transmission Date: 20120608
  Serious: Yes (Other)
  Sender: FDA-Public Use
  Company Number: US-BAYER-2012-022933

PATIENT
  Age: 54 Year
  Sex: Female
  Weight: 118 kg

DRUGS (3)
  1. ASPIRIN [Suspect]
     Indication: HYPERTENSION
     Dosage: 1 DF, QD
     Route: 048
     Dates: start: 20120201, end: 20120306
  2. BENAZEPRIL HYDROCHLORIDE [Concomitant]
     Dosage: 5-20 MILLIGRAMS
  3. ATENOLOL [Concomitant]

REACTIONS (1)
  - HAEMORRHAGE [None]
